FAERS Safety Report 7526559-3 (Version None)
Quarter: 2011Q2

REPORT INFORMATION
  Report Type: 
  Country: None (occurrence: None)
  Receive Date: 20110606
  Receipt Date: 20110524
  Transmission Date: 20111010
  Serious: Yes (Other)
  Sender: FDA-Public Use
  Company Number: US-ELI_LILLY_AND_COMPANY-US201011001658

PATIENT
  Sex: Female

DRUGS (31)
  1. OXYBUTYNIN [Concomitant]
  2. CLONAZEPAM [Concomitant]
  3. WELLBUTRIN [Concomitant]
  4. CELEBREX [Concomitant]
  5. FORTEO [Suspect]
     Dosage: 20 UG, QD
     Route: 065
  6. PHENERGAN HCL [Concomitant]
     Dosage: UNK, AS NEEDED
  7. HYDROCODONE BITARTRATE [Concomitant]
  8. FORTEO [Suspect]
     Indication: OSTEOPOROSIS
     Dosage: 20 UG, DAILY (1/D)
     Route: 065
     Dates: start: 20100601
  9. PAXIL [Concomitant]
  10. NEXIUM [Concomitant]
  11. VITAMIN D [Concomitant]
  12. VITAMIN B-12 [Concomitant]
  13. VITAMIN E /00110501/ [Concomitant]
  14. CALCIUM CARBONATE [Concomitant]
  15. METOPROLOL TARTRATE [Concomitant]
  16. STOOL SOFTENER [Concomitant]
  17. TRAZODONE HCL [Concomitant]
  18. FORTEO [Suspect]
     Dosage: 20 UG, DAILY (1/D)
     Route: 065
  19. PLAVIX [Concomitant]
  20. HYDROMORPHONE HCL [Concomitant]
     Dosage: UNK, AS NEEDED
  21. SYNTHROID [Concomitant]
  22. WELLBATRIN [Concomitant]
  23. ASPIRIN [Concomitant]
  24. RANITIDINE [Concomitant]
  25. SIMVASTATIN [Concomitant]
  26. LAMICTAL [Concomitant]
  27. FIORICET [Concomitant]
     Dosage: UNK, AS NEEDED
  28. MULTI-VITAMIN [Concomitant]
     Dosage: UNK, DAILY (1/D)
  29. ABILIFY [Concomitant]
  30. COGENTIN [Concomitant]
  31. TORADOL [Concomitant]
     Dosage: UNK, AS NEEDED

REACTIONS (8)
  - TOOTH INJURY [None]
  - PAIN [None]
  - INJECTION SITE PAIN [None]
  - UPPER LIMB FRACTURE [None]
  - INJECTION SITE HAEMATOMA [None]
  - SPEECH DISORDER [None]
  - FALL [None]
  - CEREBROVASCULAR ACCIDENT [None]
